FAERS Safety Report 10168797 (Version 4)
Quarter: 2015Q4

REPORT INFORMATION
  Report Type: Report from Study
  Country: CA (occurrence: CA)
  Receive Date: 20140513
  Receipt Date: 20151116
  Transmission Date: 20160304
  Serious: Yes (Other)
  Sender: FDA-Public Use
  Company Number: CA-ROCHE-1367613

PATIENT
  Age: 72 Year
  Sex: Female

DRUGS (19)
  1. RITUXAN [Suspect]
     Active Substance: RITUXIMAB
     Indication: RHEUMATOID ARTHRITIS
     Dosage: ON 05/OCT/2012, THE PATIENT RECEIVED PREVIOUS DOSE FO RITUXIMAB.
     Route: 042
     Dates: start: 20120920
  2. VITAMIN D3 [Concomitant]
     Active Substance: CHOLECALCIFEROL
  3. ARAVA [Concomitant]
     Active Substance: LEFLUNOMIDE
  4. FOLIC ACID. [Concomitant]
     Active Substance: FOLIC ACID
  5. LYRICA [Concomitant]
     Active Substance: PREGABALIN
  6. CORTISONE [Concomitant]
     Active Substance: CORTISONE\HYDROCORTISONE
     Dosage: DISCONTINUED
     Route: 065
  7. IRBESARTAN. [Concomitant]
     Active Substance: IRBESARTAN
  8. TRAMADOL HYDROCHLORIDE. [Concomitant]
     Active Substance: TRAMADOL HYDROCHLORIDE
  9. DOCUSATE SODIUM. [Concomitant]
     Active Substance: DOCUSATE SODIUM
  10. ASA [Concomitant]
     Active Substance: ASPIRIN
  11. ACETAMINOPHEN. [Concomitant]
     Active Substance: ACETAMINOPHEN
     Indication: PREMEDICATION
     Route: 048
     Dates: start: 20120920
  12. REPAGLINIDE. [Concomitant]
     Active Substance: REPAGLINIDE
  13. PREDNISONE. [Concomitant]
     Active Substance: PREDNISONE
  14. DIPHENHYDRAMINE HCL [Concomitant]
     Active Substance: DIPHENHYDRAMINE HYDROCHLORIDE
     Indication: PREMEDICATION
     Route: 048
     Dates: start: 20120920
  15. INDAPAMIDE. [Concomitant]
     Active Substance: INDAPAMIDE
  16. CRESTOR [Concomitant]
     Active Substance: ROSUVASTATIN CALCIUM
  17. METFORMIN [Concomitant]
     Active Substance: METFORMIN HYDROCHLORIDE
     Route: 065
     Dates: start: 201301, end: 201301
  18. JANUVIA [Concomitant]
     Active Substance: SITAGLIPTIN PHOSPHATE
  19. METHYLPREDNISOLONE. [Concomitant]
     Active Substance: METHYLPREDNISOLONE
     Indication: PREMEDICATION
     Route: 042
     Dates: start: 20120920

REACTIONS (5)
  - Type 1 diabetes mellitus [Unknown]
  - Rheumatoid arthritis [Not Recovered/Not Resolved]
  - Memory impairment [Unknown]
  - Back pain [Unknown]
  - Joint swelling [Unknown]

NARRATIVE: CASE EVENT DATE: 201301
